FAERS Safety Report 8162591-7 (Version None)
Quarter: 2012Q1

REPORT INFORMATION
  Report Type: 
  Country: None (occurrence: None)
  Receive Date: 20120224
  Receipt Date: 20120217
  Transmission Date: 20120608
  Serious: Yes (Other)
  Sender: FDA-Public Use
  Company Number: US-SANOFI-AVENTIS-2012SA009609

PATIENT
  Sex: Female

DRUGS (1)
  1. PLAVIX [Suspect]

REACTIONS (4)
  - DEMENTIA [None]
  - UNEVALUABLE EVENT [None]
  - HAEMORRHAGE INTRACRANIAL [None]
  - AMNESIA [None]
